FAERS Safety Report 13267659 (Version 2)
Quarter: 2017Q1

REPORT INFORMATION
  Report Type: Spontaneous
  Country: US (occurrence: US)
  Receive Date: 20170224
  Receipt Date: 20170306
  Transmission Date: 20170428
  Serious: No
  Sender: FDA-Public Use
  Company Number: US-PFIZER INC-2017079786

PATIENT
  Age: 80 Year
  Sex: Female
  Weight: 78.5 kg

DRUGS (1)
  1. IBRANCE [Suspect]
     Active Substance: PALBOCICLIB
     Indication: BREAST CANCER METASTATIC
     Dosage: 125 MG, CYCLIC (DAILY DAY 1-21 EVERY 28 DAYS)
     Route: 048
     Dates: start: 20170206

REACTIONS (2)
  - White blood cell count decreased [Recovering/Resolving]
  - Fatigue [Unknown]
